FAERS Safety Report 6453177-0 (Version None)
Quarter: 2009Q4

REPORT INFORMATION
  Report Type: 
  Country: None (occurrence: None)
  Receive Date: 20091124
  Receipt Date: 20091118
  Transmission Date: 20100525
  Serious: Yes (Hospitalization)
  Sender: FDA-Public Use
  Company Number: US-BRISTOL-MYERS SQUIBB COMPANY-14863674

PATIENT
  Age: 49 Year
  Sex: Male
  Weight: 76 kg

DRUGS (2)
  1. CISPLATIN [Suspect]
     Indication: PHARYNGEAL CANCER STAGE UNSPECIFIED
     Dosage: CISPLATIN 100MG/M2
     Dates: start: 20090120, end: 20090210
  2. RADIATION THERAPY [Suspect]
     Indication: HEAD AND NECK CANCER
     Dosage: 1 DF = 12.6 GY. NO OF FRACTIONS: 70. NO OF ELASPSED DAYS: 42. ADMINISTRATION OF EXTERNAL BEAM,IMRT
     Dates: start: 20090120, end: 20090303

REACTIONS (2)
  - CANDIDIASIS [None]
  - ORAL PAIN [None]
